FAERS Safety Report 4489732-7 (Version None)
Quarter: 2004Q4

REPORT INFORMATION
  Report Type: 
  Country: None (occurrence: None)
  Receive Date: 20041027
  Receipt Date: 20040907
  Transmission Date: 20050328
  Serious: No
  Sender: FDA-Public Use
  Company Number: DL2004228

PATIENT
  Age: 24 Year
  Sex: Female

DRUGS (3)
  1. MIFEPRISTONE [Suspect]
     Indication: ABORTION INDUCED
     Dosage: 200 MG, ORAL
     Route: 048
     Dates: start: 20040706
  2. MISOPROSTOL [Suspect]
     Dosage: 800 MCG, VAGINAL; 100 MCG TID
     Route: 067
     Dates: start: 20040720, end: 20040724
  3. MISOPROSTOL [Suspect]
     Dosage: 800 MCG, VAGINAL; 100 MCG TID
     Route: 067
     Dates: start: 20040707

REACTIONS (2)
  - ABORTION INCOMPLETE [None]
  - HAEMORRHAGE [None]
